FAERS Safety Report 13984345 (Version 4)
Quarter: 2017Q4

REPORT INFORMATION
  Report Type: Spontaneous
  Country: JP (occurrence: JP)
  Receive Date: 20170918
  Receipt Date: 20171102
  Transmission Date: 20180321
  Serious: Yes (Hospitalization, Other)
  Sender: FDA-Public Use
  Company Number: JP-CELGENEUS-JPN-20170902031

PATIENT
  Sex: Male

DRUGS (1)
  1. REVLIMID [Suspect]
     Active Substance: LENALIDOMIDE
     Indication: PLASMA CELL MYELOMA
     Dosage: 15 MILLIGRAM
     Route: 048
     Dates: start: 20170630, end: 20170911

REACTIONS (6)
  - Delirium [Unknown]
  - General physical condition abnormal [Unknown]
  - Monoplegia [Unknown]
  - Pneumonia [Unknown]
  - Plasma cell myeloma [Unknown]
  - Vomiting [Unknown]

NARRATIVE: CASE EVENT DATE: 2017
